FAERS Safety Report 19728635 (Version 1)
Quarter: 2021Q3

REPORT INFORMATION
  Report Type: Spontaneous
  Country: CN (occurrence: CN)
  Receive Date: 20210820
  Receipt Date: 20210820
  Transmission Date: 20211014
  Serious: Yes (Disabling)
  Sender: FDA-Public Use
  Company Number: CN-PURDUE-USA-2021-0282190

PATIENT
  Age: 58 Year
  Sex: Female
  Weight: 44 kg

DRUGS (4)
  1. OXYCONTIN [Suspect]
     Active Substance: OXYCODONE HYDROCHLORIDE
     Dosage: 50 MG, Q12H (REPORTED AS 40 MG +10 MG)
     Route: 048
     Dates: start: 20210722, end: 20210727
  2. CEFOPERAZONE SODIUM AND SULBACTAM SODIUM [Suspect]
     Active Substance: CEFOPERAZONE SODIUM\SULBACTAM SODIUM
     Indication: FEBRILE INFECTION
     Dosage: 2 G, Q12H
     Route: 041
     Dates: start: 20210722, end: 20210727
  3. OXYCONTIN [Suspect]
     Active Substance: OXYCODONE HYDROCHLORIDE
     Indication: ANALGESIC THERAPY
     Dosage: 30 MG, Q12H
     Route: 048
     Dates: start: 20210618
  4. LEVOFLOXACIN LACTATE AND SODIUM CHLORIDE [Concomitant]
     Active Substance: LEVOFLOXACIN LACTATE
     Indication: FEBRILE INFECTION
     Dosage: 0.5 G, DAILY
     Route: 041
     Dates: start: 20210718

REACTIONS (1)
  - Hepatic function abnormal [Unknown]

NARRATIVE: CASE EVENT DATE: 20210726
